FAERS Safety Report 6642812-X (Version None)
Quarter: 2010Q1

REPORT INFORMATION
  Report Type: 
  Country: None (occurrence: None)
  Receive Date: 20100319
  Receipt Date: 20100310
  Transmission Date: 20100710
  Serious: Yes (Life-Threatening, Hospitalization, Other)
  Sender: FDA-Public Use
  Company Number: US-PFIZER INC-2010004942

PATIENT
  Sex: Male
  Weight: 92 kg

DRUGS (10)
  1. CHANTIX [Suspect]
     Indication: TOBACCO USER
     Dosage: UNK
     Dates: start: 20090301, end: 20090101
  2. CHANTIX [Suspect]
     Dosage: UNK
     Dates: start: 20091101
  3. KLONOPIN [Suspect]
     Dosage: 1 MG, AS NEEDED
     Route: 048
  4. ALCOHOL [Suspect]
  5. ASPIRIN [Concomitant]
     Dosage: 325 MG, 1X/DAY
  6. VOLTAREN [Concomitant]
     Route: 048
  7. DYAZIDE [Concomitant]
     Dosage: 37.5 MG, 1X/DAY
  8. BENICAR [Concomitant]
  9. PERCOCET [Concomitant]
     Dosage: 5 MG, AS NEEDED
  10. ZOCOR [Concomitant]

REACTIONS (6)
  - ATTENTION DEFICIT/HYPERACTIVITY DISORDER [None]
  - BLOOD ALCOHOL INCREASED [None]
  - INSOMNIA [None]
  - OVERDOSE [None]
  - RESPIRATORY DEPRESSION [None]
  - SUICIDE ATTEMPT [None]
